FAERS Safety Report 4323316-6 (Version None)
Quarter: 2004Q1

REPORT INFORMATION
  Report Type: 
  Country: None (occurrence: None)
  Receive Date: 20040323
  Receipt Date: 20040323
  Transmission Date: 20041129
  Serious: Yes (Other)
  Sender: FDA-Public Use
  Company Number: None

PATIENT
  Age: 85 Year
  Sex: Male
  Weight: 71.7 kg

DRUGS (9)
  1. GATIFLOXACIN [Suspect]
     Indication: LUNG INFILTRATION
     Dosage: 400 MG, DAILY , ORAL
     Route: 048
     Dates: start: 20030917, end: 20030918
  2. CARBIDOPA 50/KEVIDOPA SA [Concomitant]
  3. CALCIUM 500 MG /VITAMIN D [Concomitant]
  4. AMANTADINE HCL [Concomitant]
  5. SIMVASTATIN [Concomitant]
  6. ISOSORBIDE DINITRATE [Concomitant]
  7. CARBIODOPA 25/LEVODOPA [Concomitant]
  8. GUAIFENESIN (ALC-F/SF) [Concomitant]
  9. IBUPROFEN [Concomitant]

REACTIONS (1)
  - CONFUSIONAL STATE [None]
